FAERS Safety Report 13400034 (Version 1)
Quarter: 2017Q2

REPORT INFORMATION
  Report Type: Spontaneous
  Country: PL (occurrence: PL)
  Receive Date: 20170404
  Receipt Date: 20170404
  Transmission Date: 20170830
  Serious: Yes (Death, Other)
  Sender: FDA-Public Use
  Company Number: PL-SUN PHARMACEUTICAL INDUSTRIES LTD-2017RR-137444

PATIENT
  Age: 53 Year
  Sex: Female

DRUGS (8)
  1. CAPECITABINE. [Suspect]
     Active Substance: CAPECITABINE
     Indication: COLON CANCER METASTATIC
     Dosage: 1250 MG/M2, DAILY, FOR 14 DAYS, 2 CYCLES
     Route: 048
  2. IRINOTECAN [Suspect]
     Active Substance: IRINOTECAN
     Indication: COLON CANCER METASTATIC
     Route: 065
  3. OXALIPLATIN. [Suspect]
     Active Substance: OXALIPLATIN
     Indication: COLON CANCER METASTATIC
     Dosage: 85 MG/M2, UNK
     Route: 065
  4. LEUCOVORIN. [Concomitant]
     Active Substance: LEUCOVORIN
     Indication: COLON CANCER METASTATIC
     Dosage: 200 MG/M2, UNK
     Route: 065
  5. 5-FLOURUORACIL [Concomitant]
     Dosage: 600 MG/M2, 48-HOUR INFUSION
     Route: 042
  6. 5-FLOURUORACIL [Concomitant]
     Indication: COLON CANCER METASTATIC
     Dosage: 400 MG/M2, UNK
     Route: 040
  7. DEXAMETHASONE. [Concomitant]
     Active Substance: DEXAMETHASONE
     Indication: COLON CANCER METASTATIC
     Route: 065
  8. BEVACIZUMAB [Concomitant]
     Active Substance: BEVACIZUMAB
     Indication: COLON CANCER METASTATIC
     Dosage: 5 MG/KG, A CYCLE , REPEATED EVERY 14 DAYS
     Route: 065

REACTIONS (7)
  - Pyrexia [Unknown]
  - Drug ineffective [Unknown]
  - Palmar-plantar erythrodysaesthesia syndrome [Unknown]
  - Chills [Unknown]
  - Abdominal pain upper [Unknown]
  - Disease progression [Fatal]
  - Hypersensitivity [Unknown]
